FAERS Safety Report 7577651-9 (Version None)
Quarter: 2011Q2

REPORT INFORMATION
  Report Type: 
  Country: None (occurrence: None)
  Receive Date: 20110628
  Receipt Date: 20110624
  Transmission Date: 20111010
  Serious: Yes (Other)
  Sender: FDA-Public Use
  Company Number: US-PFIZER INC-2011141231

PATIENT
  Sex: Female
  Weight: 70.748 kg

DRUGS (3)
  1. VIAGRA [Suspect]
     Indication: ERECTILE DYSFUNCTION
     Dosage: UNK
     Route: 048
     Dates: start: 20110602
  2. ACETYLSALICYLIC ACID [Concomitant]
     Dosage: UNK
  3. ADVIL LIQUI-GELS [Concomitant]
     Dosage: UNK

REACTIONS (5)
  - HYPOAESTHESIA [None]
  - ERECTION INCREASED [None]
  - SWELLING [None]
  - GAIT DISTURBANCE [None]
  - PENILE PAIN [None]
